FAERS Safety Report 7998755-2 (Version None)
Quarter: 2011Q4

REPORT INFORMATION
  Report Type: 
  Country: None (occurrence: None)
  Receive Date: 20111221
  Receipt Date: 20111206
  Transmission Date: 20120403
  Serious: Yes (Other)
  Sender: FDA-Public Use
  Company Number: US-WATSON-2011-21840

PATIENT
  Age: 24 Year
  Sex: Male

DRUGS (5)
  1. PREDNISOLONE [Suspect]
     Indication: HEART TRANSPLANT
  2. PREDNISONE TAB [Suspect]
     Indication: HEART TRANSPLANT
  3. AZATHIOPRINE [Suspect]
     Indication: HEART TRANSPLANT
  4. CYCLOSPORINE [Suspect]
     Indication: HEART TRANSPLANT
  5. METHYLPREDNISOLONE [Suspect]
     Indication: HEART TRANSPLANT

REACTIONS (1)
  - CHRONIC MYELOID LEUKAEMIA [None]
